FAERS Safety Report 13188970 (Version 2)
Quarter: 2017Q1

REPORT INFORMATION
  Report Type: Spontaneous
  Country: US (occurrence: US)
  Receive Date: 20170206
  Receipt Date: 20170210
  Transmission Date: 20170428
  Serious: No
  Sender: FDA-Public Use
  Company Number: US-GLAXOSMITHKLINE-US2017015644

PATIENT
  Age: 59 Year
  Sex: Male

DRUGS (1)
  1. FLOVENT [Suspect]
     Active Substance: FLUTICASONE PROPIONATE
     Indication: PRODUCT USED FOR UNKNOWN INDICATION
     Dosage: 1 PUFF(S), BID
     Route: 055
     Dates: start: 20170201, end: 20170201

REACTIONS (8)
  - Feeling abnormal [Unknown]
  - Hypersensitivity [Unknown]
  - Impaired work ability [Unknown]
  - Prescribed underdose [Unknown]
  - Nausea [Unknown]
  - Dysstasia [Unknown]
  - Dizziness [Recovered/Resolved]
  - Balance disorder [Unknown]

NARRATIVE: CASE EVENT DATE: 20170201
